FAERS Safety Report 7801685-X (Version None)
Quarter: 2011Q4

REPORT INFORMATION
  Report Type: 
  Country: None (occurrence: None)
  Receive Date: 20111005
  Receipt Date: 20110920
  Transmission Date: 20120403
  Serious: Yes (Death, Other)
  Sender: FDA-Public Use
  Company Number: US-2011-10692

PATIENT
  Age: 47 Year
  Sex: Female

DRUGS (3)
  1. BUSULFEX [Suspect]
     Indication: BONE MARROW TRANSPLANT
     Dosage: 42 MG MILLIGRAM(S), QID, INTRAVENOUS
     Route: 042
     Dates: start: 20090513, end: 20090516
  2. CYCLOPHOSPHAMIDE [Suspect]
     Indication: BONE MARROW TRANSPLANT
     Dosage: 3180 MG MILLIGRAM(S), QD, INTRAVENOUS
     Route: 042
     Dates: start: 20090511, end: 20090512
  3. METHOTREXATE SODIUM [Suspect]
     Indication: ACUTE MYELOID LEUKAEMIA
     Dosage: 23 MG MILLIGRAM(S), QW, INTRATHECAL
     Route: 037
     Dates: start: 20090519, end: 20090529

REACTIONS (3)
  - CARDIAC ARREST [None]
  - CARDIAC FAILURE [None]
  - ACUTE PULMONARY OEDEMA [None]
